FAERS Safety Report 6110303-0 (Version None)
Quarter: 2009Q1

REPORT INFORMATION
  Report Type: 
  Country: None (occurrence: None)
  Receive Date: 20090310
  Receipt Date: 20090226
  Transmission Date: 20090719
  Serious: Yes (Other)
  Sender: FDA-Public Use
  Company Number: KR-PFIZER INC-2009177099

PATIENT

DRUGS (2)
  1. PROVERA [Suspect]
     Dosage: 10 MG, 2X/DAY
     Route: 048
     Dates: start: 20090215, end: 20090219
  2. PROVERA [Suspect]
     Dosage: 10 MG, 2X/DAY
     Dates: start: 20090220

REACTIONS (5)
  - ABDOMINAL DISCOMFORT [None]
  - CHEST PAIN [None]
  - EXPIRED DRUG ADMINISTERED [None]
  - HYPERTHYROIDISM [None]
  - MUSCULOSKELETAL PAIN [None]
